FAERS Safety Report 22041658 (Version 1)
Quarter: 2023Q1

REPORT INFORMATION
  Report Type: Spontaneous
  Country: US (occurrence: None)
  Receive Date: 20230223
  Receipt Date: 20230223
  Transmission Date: 20230418
  Serious: Yes (Hospitalization)
  Sender: FDA-Public Use
  Company Number: None

PATIENT

DRUGS (2)
  1. EPINEPHRINE\LIDOCAINE\TETRACAINE [Suspect]
     Active Substance: EPINEPHRINE\LIDOCAINE\TETRACAINE
     Route: 061
  2. DEVICE [Suspect]
     Active Substance: DEVICE

REACTIONS (4)
  - Product design confusion [None]
  - Device use confusion [None]
  - Product label issue [None]
  - Circumstance or information capable of leading to device use error [None]
